FAERS Safety Report 24290319 (Version 1)
Quarter: 2024Q3

REPORT INFORMATION
  Report Type: Spontaneous
  Country: CA (occurrence: CA)
  Receive Date: 20240906
  Receipt Date: 20240906
  Transmission Date: 20241017
  Serious: Yes (Life-Threatening, Hospitalization, Other)
  Sender: TEVA
  Company Number: CA-TEVA-VS-3238539

PATIENT
  Age: 52 Year
  Sex: Male

DRUGS (47)
  1. ACETAMINOPHEN\OXYCODONE HYDROCHLORIDE [Suspect]
     Active Substance: ACETAMINOPHEN\OXYCODONE HYDROCHLORIDE
     Indication: Product used for unknown indication
     Route: 048
  2. ACETAMINOPHEN\OXYCODONE HYDROCHLORIDE [Suspect]
     Active Substance: ACETAMINOPHEN\OXYCODONE HYDROCHLORIDE
     Indication: Product used for unknown indication
     Route: 048
  3. DIAZEPAM [Suspect]
     Active Substance: DIAZEPAM
     Indication: Spinal stenosis
     Route: 065
  4. DIAZEPAM [Suspect]
     Active Substance: DIAZEPAM
     Indication: Spinal stenosis
     Route: 048
  5. DIAZEPAM [Suspect]
     Active Substance: DIAZEPAM
     Indication: Spinal stenosis
     Route: 048
  6. ESCITALOPRAM OXALATE [Suspect]
     Active Substance: ESCITALOPRAM OXALATE
     Indication: Depression
     Route: 048
  7. ESCITALOPRAM OXALATE [Suspect]
     Active Substance: ESCITALOPRAM OXALATE
     Indication: Depression
     Route: 048
  8. ESCITALOPRAM OXALATE [Suspect]
     Active Substance: ESCITALOPRAM OXALATE
     Indication: Depression
     Route: 065
  9. ESCITALOPRAM OXALATE [Suspect]
     Active Substance: ESCITALOPRAM OXALATE
     Indication: Depression
     Route: 065
  10. ESCITALOPRAM OXALATE [Suspect]
     Active Substance: ESCITALOPRAM OXALATE
     Indication: Depression
     Route: 065
  11. ESCITALOPRAM OXALATE [Suspect]
     Active Substance: ESCITALOPRAM OXALATE
     Indication: Depression
     Route: 065
  12. ESCITALOPRAM OXALATE [Suspect]
     Active Substance: ESCITALOPRAM OXALATE
     Indication: Depression
     Route: 065
  13. ESCITALOPRAM OXALATE [Suspect]
     Active Substance: ESCITALOPRAM OXALATE
     Indication: Depression
     Route: 065
  14. ESCITALOPRAM OXALATE [Suspect]
     Active Substance: ESCITALOPRAM OXALATE
     Indication: Depression
     Route: 048
  15. MORPHINE [Suspect]
     Active Substance: MORPHINE
     Indication: Spinal stenosis
     Route: 048
  16. MORPHINE [Suspect]
     Active Substance: MORPHINE
     Indication: Spinal stenosis
     Route: 048
  17. MORPHINE [Suspect]
     Active Substance: MORPHINE
     Indication: Spinal stenosis
     Route: 065
  18. MORPHINE [Suspect]
     Active Substance: MORPHINE
     Indication: Spinal stenosis
     Route: 048
  19. MORPHINE [Suspect]
     Active Substance: MORPHINE
     Indication: Spinal stenosis
     Route: 065
  20. MORPHINE [Suspect]
     Active Substance: MORPHINE
     Indication: Spinal stenosis
     Route: 065
  21. MORPHINE [Suspect]
     Active Substance: MORPHINE
     Indication: Spinal stenosis
     Route: 065
  22. MORPHINE [Suspect]
     Active Substance: MORPHINE
     Indication: Spinal stenosis
     Route: 065
  23. MORPHINE [Suspect]
     Active Substance: MORPHINE
     Indication: Spinal stenosis
     Route: 065
  24. MORPHINE [Suspect]
     Active Substance: MORPHINE
     Indication: Spinal stenosis
     Route: 048
  25. MORPHINE [Suspect]
     Active Substance: MORPHINE
     Indication: Spinal stenosis
     Route: 048
  26. MORPHINE [Suspect]
     Active Substance: MORPHINE
     Indication: Spinal stenosis
     Route: 048
  27. MORPHINE [Suspect]
     Active Substance: MORPHINE
     Indication: Spinal stenosis
     Route: 065
  28. MORPHINE [Suspect]
     Active Substance: MORPHINE
     Indication: Spinal stenosis
     Route: 065
  29. MORPHINE [Suspect]
     Active Substance: MORPHINE
     Indication: Spinal stenosis
     Route: 065
  30. MORPHINE [Suspect]
     Active Substance: MORPHINE
     Indication: Spinal stenosis
     Route: 065
  31. MORPHINE [Suspect]
     Active Substance: MORPHINE
     Indication: Spinal stenosis
     Route: 065
  32. CITALOPRAM [Suspect]
     Active Substance: CITALOPRAM\CITALOPRAM HYDROBROMIDE
     Indication: Product used for unknown indication
     Route: 048
  33. ALTACE [Suspect]
     Active Substance: RAMIPRIL
     Indication: Product used for unknown indication
     Route: 065
  34. ALTACE [Suspect]
     Active Substance: RAMIPRIL
     Indication: Product used for unknown indication
     Route: 065
  35. ZOPICLONE [Suspect]
     Active Substance: ZOPICLONE
     Indication: Insomnia
     Route: 048
  36. ZOPICLONE [Suspect]
     Active Substance: ZOPICLONE
     Indication: Insomnia
     Route: 048
  37. ZOPICLONE [Suspect]
     Active Substance: ZOPICLONE
     Indication: Insomnia
     Route: 065
  38. OXYCODONE [Suspect]
     Active Substance: OXYCODONE
     Indication: Spinal stenosis
     Route: 048
  39. OXYCODONE [Suspect]
     Active Substance: OXYCODONE
     Indication: Spinal stenosis
     Route: 048
  40. OXYCODONE [Suspect]
     Active Substance: OXYCODONE
     Indication: Spinal stenosis
     Route: 065
  41. OXYCODONE [Suspect]
     Active Substance: OXYCODONE
     Indication: Spinal stenosis
     Route: 065
  42. OXYCODONE [Suspect]
     Active Substance: OXYCODONE
     Indication: Spinal stenosis
     Route: 065
  43. OXYCODONE [Suspect]
     Active Substance: OXYCODONE
     Indication: Spinal stenosis
     Route: 065
  44. OXYCODONE [Suspect]
     Active Substance: OXYCODONE
     Indication: Spinal stenosis
     Route: 065
  45. OXYCODONE [Suspect]
     Active Substance: OXYCODONE
     Indication: Spinal stenosis
     Route: 048
  46. LORAZEPAM [Suspect]
     Active Substance: LORAZEPAM
     Indication: Insomnia
     Route: 048
  47. LORAZEPAM [Suspect]
     Active Substance: LORAZEPAM
     Indication: Insomnia
     Route: 048

REACTIONS (22)
  - Bradycardia [Recovered/Resolved]
  - Electrocardiogram QT prolonged [Recovered/Resolved]
  - Loss of consciousness [Recovered/Resolved]
  - Hypotension [Recovered/Resolved]
  - Coma [Recovered/Resolved]
  - Blood pressure decreased [Recovered/Resolved]
  - Hyperkalaemia [Recovered/Resolved]
  - Blood potassium increased [Recovered/Resolved]
  - Drug interaction [Recovered/Resolved]
  - Blood creatinine increased [Recovered/Resolved]
  - Coma scale abnormal [Recovered/Resolved]
  - Oxygen saturation decreased [Recovered/Resolved]
  - Overdose [Recovered/Resolved]
  - Opiates positive [Recovered/Resolved]
  - Intentional overdose [Recovered/Resolved]
  - Heart rate decreased [Recovered/Resolved]
  - Electrocardiogram abnormal [Recovered/Resolved]
  - Suicide attempt [Recovered/Resolved]
  - Drug screen positive [Recovered/Resolved]
  - Mechanical ventilation [Recovered/Resolved]
  - Sinus tachycardia [Recovered/Resolved]
  - Blood creatine phosphokinase increased [Recovered/Resolved]
